FAERS Safety Report 16296490 (Version 1)
Quarter: 2019Q2

REPORT INFORMATION
  Report Type: Spontaneous
  Country: US (occurrence: US)
  Receive Date: 20190404
  Receipt Date: 20190404
  Transmission Date: 20190711
  Serious: Yes (Other)
  Sender: FDA-Public Use
  Company Number: None

PATIENT
  Age: 60 Year
  Sex: Male
  Weight: 63.96 kg

DRUGS (1)
  1. FELBAMATE. [Suspect]
     Active Substance: FELBAMATE
     Indication: FOCAL DYSCOGNITIVE SEIZURES
     Dosage: ?          OTHER DOSE:1200/1200/200;?
     Route: 048
     Dates: start: 2008

REACTIONS (2)
  - Stomatitis [None]
  - Product substitution issue [None]

NARRATIVE: CASE EVENT DATE: 2018
